FAERS Safety Report 14720609 (Version 2)
Quarter: 2018Q2

REPORT INFORMATION
  Report Type: Report from Study
  Country: US (occurrence: US)
  Receive Date: 20180405
  Receipt Date: 20180411
  Transmission Date: 20180711
  Serious: Yes (Hospitalization)
  Sender: FDA-Public Use
  Company Number: US-JNJFOC-20180333704

PATIENT
  Sex: Male

DRUGS (17)
  1. CELECOXIB. [Concomitant]
     Active Substance: CELECOXIB
  2. IMBRUVICA [Suspect]
     Active Substance: IBRUTINIB
     Indication: CHRONIC LYMPHOCYTIC LEUKAEMIA
     Route: 048
     Dates: start: 20170802
  3. BISOPROLOL/HYDROCHLOROTHIAZID [Concomitant]
  4. OMEPRAZOLE. [Concomitant]
     Active Substance: OMEPRAZOLE
  5. LEVEMIR [Concomitant]
     Active Substance: INSULIN DETEMIR
  6. LATANOPROST. [Concomitant]
     Active Substance: LATANOPROST
  7. AMLODIPINE [Concomitant]
     Active Substance: AMLODIPINE BESYLATE
  8. ALFUZOSIN [Concomitant]
     Active Substance: ALFUZOSIN
  9. LISINOPRIL. [Concomitant]
     Active Substance: LISINOPRIL
  10. ROSUVASTATIN. [Concomitant]
     Active Substance: ROSUVASTATIN
  11. FINASTERIDE. [Concomitant]
     Active Substance: FINASTERIDE
  12. MULTIVITAMINS [Concomitant]
     Active Substance: VITAMINS
  13. ASPIRIN. [Concomitant]
     Active Substance: ASPIRIN
  14. FERROUS SULFATE. [Concomitant]
     Active Substance: FERROUS SULFATE
  15. IMBRUVICA [Suspect]
     Active Substance: IBRUTINIB
     Indication: CHRONIC LYMPHOCYTIC LEUKAEMIA
     Route: 048
     Dates: start: 20170803
  16. ZETIA [Concomitant]
     Active Substance: EZETIMIBE
  17. SERTRALINE [Concomitant]
     Active Substance: SERTRALINE HYDROCHLORIDE

REACTIONS (3)
  - Cardiac disorder [Not Recovered/Not Resolved]
  - Thrombosis [Unknown]
  - Respiration abnormal [Unknown]
